FAERS Safety Report 16901478 (Version 1)
Quarter: 2019Q4

REPORT INFORMATION
  Report Type: Spontaneous
  Country: FR (occurrence: FR)
  Receive Date: 20191009
  Receipt Date: 20191009
  Transmission Date: 20200122
  Serious: Yes (Hospitalization, Other)
  Sender: FDA-Public Use
  Company Number: FR-AUROBINDO-AUR-APL-2019-064613

PATIENT
  Age: 58 Year
  Sex: Male
  Weight: 80 kg

DRUGS (4)
  1. TERCIAN [Interacting]
     Active Substance: CYAMEMAZINE
     Indication: ANXIETY
     Dosage: UNK, IF NECESSARY
     Route: 048
     Dates: end: 20190722
  2. ESCITALOPRAM ARROW FILM-COATED TABLET 10MG [Suspect]
     Active Substance: ESCITALOPRAM OXALATE
     Indication: OBSESSIVE-COMPULSIVE DISORDER
     Dosage: 10 MILLIGRAM, ONCE A DAY
     Route: 048
     Dates: start: 20190715, end: 20190722
  3. RISPERIDONE MYLAN [Interacting]
     Active Substance: RISPERIDONE
     Indication: OBSESSIVE-COMPULSIVE DISORDER
     Dosage: 4 MILLIGRAM, ONCE A DAY
     Route: 048
     Dates: start: 201902, end: 20190722
  4. CLOMIPRAMINE [Interacting]
     Active Substance: CLOMIPRAMINE
     Indication: OBSESSIVE-COMPULSIVE DISORDER
     Dosage: 200 MILLIGRAM, ONCE A DAY
     Route: 048
     Dates: start: 201907

REACTIONS (3)
  - Altered state of consciousness [Recovered/Resolved]
  - Pyrexia [Recovered/Resolved]
  - Extrapyramidal disorder [Recovered/Resolved]

NARRATIVE: CASE EVENT DATE: 20190722
